FAERS Safety Report 5897134-1 (Version None)
Quarter: 2008Q3

REPORT INFORMATION
  Report Type: 
  Country: None (occurrence: None)
  Receive Date: 20080924
  Receipt Date: 20080509
  Transmission Date: 20090109
  Serious: Yes (Other)
  Sender: FDA-Public Use
  Company Number: US-ASTRAZENECA-2008UW09619

PATIENT
  Age: 38 Year
  Sex: Female
  Weight: 56.7 kg

DRUGS (2)
  1. SEROQUEL [Suspect]
     Indication: DEPRESSION
     Dosage: 1/2 TABLET OF SEROQUEL 50 MG ONCE A NIGHT FOR A COUPLE OF DAYS
     Route: 048
     Dates: start: 20080429, end: 20080501
  2. TOPAMAX [Concomitant]

REACTIONS (5)
  - FEELING OF DESPAIR [None]
  - HALLUCINATION, AUDITORY [None]
  - PAIN [None]
  - SUICIDAL IDEATION [None]
  - THINKING ABNORMAL [None]
